FAERS Safety Report 24969115 (Version 1)
Quarter: 2025Q1

REPORT INFORMATION
  Report Type: Spontaneous
  Country: US (occurrence: US)
  Receive Date: 20250214
  Receipt Date: 20250214
  Transmission Date: 20250409
  Serious: No
  Sender: Kenvue
  Company Number: US-KENVUE-20250108701

PATIENT

DRUGS (1)
  1. WOMENS ROGAINE UNSCENTED [Suspect]
     Active Substance: MINOXIDIL
     Indication: Product used for unknown indication
     Route: 061

REACTIONS (6)
  - Product quality issue [Unknown]
  - Application site dryness [Unknown]
  - Adverse event [Unknown]
  - Poor quality product administered [Unknown]
  - Product formulation issue [Unknown]
  - Product container issue [Unknown]
